FAERS Safety Report 7556064-X (Version None)
Quarter: 2011Q2

REPORT INFORMATION
  Report Type: 
  Country: None (occurrence: None)
  Receive Date: 20110620
  Receipt Date: 20110613
  Transmission Date: 20111010
  Serious: No
  Sender: FDA-Public Use
  Company Number: US-BIOGENIDEC-2010BI044190

PATIENT
  Age: 42 Year
  Sex: Female

DRUGS (2)
  1. AVONEX [Concomitant]
     Indication: MULTIPLE SCLEROSIS
     Route: 030
  2. TYSABRI [Suspect]
     Indication: MULTIPLE SCLEROSIS
     Route: 042
     Dates: start: 20101129

REACTIONS (6)
  - HEADACHE [None]
  - INSOMNIA [None]
  - MUSCULOSKELETAL PAIN [None]
  - MYALGIA [None]
  - FATIGUE [None]
  - FEELING OF BODY TEMPERATURE CHANGE [None]
